FAERS Safety Report 4421553-3 (Version None)
Quarter: 2004Q3

REPORT INFORMATION
  Report Type: 
  Country: None (occurrence: None)
  Receive Date: 20040809
  Receipt Date: 20040809
  Transmission Date: 20050211
  Serious: No
  Sender: FDA-Public Use
  Company Number: None

PATIENT
  Age: 81 Year
  Sex: Male

DRUGS (1)
  1. CEFAZOLIN [Suspect]
     Indication: CULTURE URINE POSITIVE
     Dosage: 1 GM Q 8
     Dates: start: 20040212, end: 20040216

REACTIONS (5)
  - CLOSTRIDIAL INFECTION [None]
  - COMPUTERISED TOMOGRAM ABDOMEN ABNORMAL [None]
  - DYSGEUSIA [None]
  - HYPERTENSION [None]
  - WHITE BLOOD CELL COUNT INCREASED [None]
